FAERS Safety Report 7383753-2 (Version None)
Quarter: 2011Q1

REPORT INFORMATION
  Report Type: 
  Country: None (occurrence: None)
  Receive Date: 20110330
  Receipt Date: 20110316
  Transmission Date: 20110831
  Serious: Yes (Other)
  Sender: FDA-Public Use
  Company Number: MX-ELI_LILLY_AND_COMPANY-MX201103005486

PATIENT
  Age: 68 Year
  Sex: Male

DRUGS (1)
  1. TADALAFIL [Suspect]
     Dosage: UNK UNK, UNKNOWN

REACTIONS (2)
  - ARTERIAL DISORDER [None]
  - GASTROINTESTINAL HAEMORRHAGE [None]
